FAERS Safety Report 9270193 (Version 1)
Quarter: 2013Q2

REPORT INFORMATION
  Report Type: Spontaneous
  Country: US (occurrence: US)
  Receive Date: 20130503
  Receipt Date: 20130503
  Transmission Date: 20140414
  Serious: Yes (Hospitalization)
  Sender: FDA-Public Use
  Company Number: US-ACTAVIS-2013-07283

PATIENT
  Age: 2 Year
  Sex: Female

DRUGS (1)
  1. BUPRENORPHINE-NALOXONE (AELLC) [Suspect]
     Indication: PRODUCT USED FOR UNKNOWN INDICATION
     Dosage: UNK UNK, SINGLE
     Route: 048
     Dates: start: 20130413, end: 20130413

REACTIONS (3)
  - Malaise [Unknown]
  - Drug screen positive [Unknown]
  - Accidental exposure to product by child [Unknown]
